FAERS Safety Report 7769318-9 (Version None)
Quarter: 2011Q3

REPORT INFORMATION
  Report Type: 
  Country: None (occurrence: None)
  Receive Date: 20110922
  Receipt Date: 20110810
  Transmission Date: 20111222
  Serious: Yes (Hospitalization)
  Sender: FDA-Public Use
  Company Number: US-ASTRAZENECA-2011SE42942

PATIENT
  Age: 44 Year
  Sex: Female
  Weight: 78.5 kg

DRUGS (11)
  1. PHENERGAN HCL [Concomitant]
     Dosage: 25 MG, FOUR TIMES A DAY
  2. METFORMIN [Concomitant]
     Dosage: 800MG, TWO TIMES A DAY
  3. SALAGEN [Concomitant]
     Dosage: 5 MG, THREE TIMES A DAY
  4. NEURONTIN [Concomitant]
     Dosage: 800 MG, TWO TIMES A DAY
  5. LEVOXEL [Concomitant]
  6. SEROQUEL [Suspect]
     Indication: SLEEP DISORDER
     Route: 048
  7. AMBIEN [Concomitant]
  8. XANAX [Concomitant]
  9. CELEXA [Concomitant]
  10. OXYCODONE HCL AND ACETAMINOPHEN [Concomitant]
     Dosage: 325 MG, FOUR TIMES A DAY
  11. ZANASLEX [Concomitant]
     Dosage: 4 MG, FOUR TIMES A DAY

REACTIONS (4)
  - DYSPHAGIA [None]
  - GASTROOESOPHAGEAL REFLUX DISEASE [None]
  - ABDOMINAL PAIN UPPER [None]
  - OESOPHAGEAL IRRITATION [None]
